FAERS Safety Report 5918648-1 (Version None)
Quarter: 2008Q3

REPORT INFORMATION
  Report Type: 
  Country: None (occurrence: None)
  Receive Date: 20080909
  Receipt Date: 20070729
  Transmission Date: 20090109
  Serious: Yes (Hospitalization)
  Sender: FDA-Public Use
  Company Number: 163-20785-07071651

PATIENT
  Age: 89 Year
  Sex: Male

DRUGS (2)
  1. THALOMID [Suspect]
     Indication: MULTIPLE MYELOMA
     Dosage: 100-150MG, DAILY, ORAL
     Route: 048
     Dates: start: 20061207
  2. DEXAMETHASONE TAB [Concomitant]

REACTIONS (2)
  - BLOOD GLUCOSE DECREASED [None]
  - FALL [None]
